FAERS Safety Report 13744560 (Version 1)
Quarter: 2017Q3

REPORT INFORMATION
  Report Type: Spontaneous
  Country: US (occurrence: US)
  Receive Date: 20170712
  Receipt Date: 20170712
  Transmission Date: 20171127
  Serious: No
  Sender: FDA-Public Use
  Company Number: US-ASTRAZENECA-2017SE71261

PATIENT
  Sex: Male
  Weight: 90.7 kg

DRUGS (2)
  1. RHINOCORT ALLERGY [Suspect]
     Active Substance: BUDESONIDE
     Indication: NASAL CONGESTION
     Route: 055
     Dates: start: 20170624, end: 20170704
  2. RHINOCORT ALLERGY [Suspect]
     Active Substance: BUDESONIDE
     Indication: SINUS CONGESTION
     Route: 055
     Dates: start: 20170624, end: 20170704

REACTIONS (6)
  - Incorrect dose administered [Not Recovered/Not Resolved]
  - Ageusia [Not Recovered/Not Resolved]
  - Product use in unapproved indication [Not Recovered/Not Resolved]
  - Anosmia [Not Recovered/Not Resolved]
  - Off label use [Not Recovered/Not Resolved]
  - Therapeutic response unexpected [Unknown]

NARRATIVE: CASE EVENT DATE: 20170624
